FAERS Safety Report 23456184 (Version 4)
Quarter: 2024Q1

REPORT INFORMATION
  Report Type: Spontaneous
  Country: US (occurrence: US)
  Receive Date: 20240130
  Receipt Date: 20240326
  Transmission Date: 20240410
  Serious: No
  Sender: FDA-Public Use
  Company Number: US-PFIZER INC-202400009137

PATIENT
  Age: 11 Year
  Sex: Male

DRUGS (1)
  1. GENOTROPIN [Suspect]
     Active Substance: SOMATROPIN
     Dosage: 1.4 MG

REACTIONS (5)
  - Incorrect dose administered by device [Unknown]
  - Device leakage [Unknown]
  - Poor quality device used [Unknown]
  - Exposure via skin contact [Unknown]
  - Accidental exposure to product [Unknown]
